FAERS Safety Report 9387176 (Version 1)
Quarter: 2013Q3

REPORT INFORMATION
  Report Type: Spontaneous
  Country: US (occurrence: None)
  Receive Date: 20130703
  Receipt Date: 20130703
  Transmission Date: 20140515
  Serious: Yes (Disabling)
  Sender: FDA-Public Use
  Company Number: None

PATIENT
  Age: 62 Year
  Sex: Female
  Weight: 54.43 kg

DRUGS (6)
  1. REUMOFAN PLUS [Suspect]
     Indication: MUSCULOSKELETAL PAIN
     Dosage: 1 PILL PER DAY 1 ORALLY ?17/08/2012?IN TAPERING OFF PROCESS NOW
     Route: 048
     Dates: start: 20120708
  2. LISINOPRIL [Concomitant]
  3. METOPROLOL TARTRATE [Concomitant]
  4. AMLODIPINE BESYLATE [Concomitant]
  5. CHONODINE HCL [Concomitant]
  6. BABY ASPIRIN [Concomitant]

REACTIONS (7)
  - Cushing^s syndrome [None]
  - Gait disturbance [None]
  - Pain [None]
  - Contusion [None]
  - Haemorrhage [None]
  - Vomiting [None]
  - Diarrhoea [None]
